FAERS Safety Report 17021312 (Version 10)
Quarter: 2020Q2

REPORT INFORMATION
  Report Type: Report from Study
  Country: JP (occurrence: JP)
  Receive Date: 20191112
  Receipt Date: 20200601
  Transmission Date: 20200713
  Serious: Yes (Hospitalization)
  Sender: FDA-Public Use
  Company Number: JP-EISAI MEDICAL RESEARCH-EC-2019-065011

PATIENT
  Age: 84 Year
  Sex: Male
  Weight: 67 kg

DRUGS (29)
  1. TRAMAL OD [Concomitant]
     Active Substance: TRAMADOL
  2. FUROSEMIDE. [Concomitant]
     Active Substance: FUROSEMIDE
  3. PEMBROLIZUMAB. [Suspect]
     Active Substance: PEMBROLIZUMAB
     Indication: RENAL CELL CARCINOMA
     Route: 041
     Dates: start: 20190619, end: 20200318
  4. BUFFERIN [Concomitant]
     Active Substance: ASPIRIN
  5. MOHRUS TAPE [Concomitant]
     Active Substance: KETOPROFEN
  6. AMITIZA [Concomitant]
     Active Substance: LUBIPROSTONE
  7. NEXIUM [Concomitant]
     Active Substance: ESOMEPRAZOLE MAGNESIUM
  8. SENNOSIDE [Concomitant]
     Active Substance: SENNOSIDES
  9. THYRADIN S [Concomitant]
     Active Substance: LEVOTHYROXINE SODIUM
  10. FLUITRAN [Concomitant]
     Active Substance: TRICHLORMETHIAZIDE
  11. TRAMAL [Concomitant]
     Active Substance: TRAMADOL
  12. AZUNOL GARGLE LIQUID [Concomitant]
  13. FEBURIC [Concomitant]
     Active Substance: FEBUXOSTAT
  14. SODIUM PICOSULFATE HYDRATE [Concomitant]
     Active Substance: SODIUM PICOSULFATE
  15. LENVATINIB [Suspect]
     Active Substance: LENVATINIB
     Route: 048
     Dates: start: 20190731, end: 20190813
  16. TEPRENONE [Concomitant]
     Active Substance: TEPRENONE
  17. LOXOPROFEN NA [Concomitant]
     Active Substance: LOXOPROFEN SODIUM
  18. LENVATINIB [Suspect]
     Active Substance: LENVATINIB
     Indication: RENAL CELL CARCINOMA
     Route: 048
     Dates: start: 20190619, end: 20190709
  19. SODIUM [Concomitant]
     Active Substance: SODIUM
  20. REBAMIPIDE [Concomitant]
     Active Substance: REBAMIPIDE
  21. LENVATINIB [Suspect]
     Active Substance: LENVATINIB
     Route: 048
     Dates: start: 20190821, end: 20191022
  22. HEPARINOID [Concomitant]
     Active Substance: CHONDROITIN SULFATE (BOVINE)
  23. NEXIUM [Concomitant]
     Active Substance: ESOMEPRAZOLE MAGNESIUM
  24. MOHRUS [Concomitant]
     Active Substance: KETOPROFEN
  25. ROZEREM [Concomitant]
     Active Substance: RAMELTEON
  26. CORTRIL [Concomitant]
     Active Substance: HYDROCORTISONE
  27. AMLODIPINE [Concomitant]
     Active Substance: AMLODIPINE BESYLATE
  28. THYRADIN S [Concomitant]
     Active Substance: LEVOTHYROXINE SODIUM
  29. FEBURIC [Concomitant]
     Active Substance: FEBUXOSTAT

REACTIONS (3)
  - Oedema [Not Recovered/Not Resolved]
  - Renal failure [Not Recovered/Not Resolved]
  - Adrenal insufficiency [Recovering/Resolving]

NARRATIVE: CASE EVENT DATE: 20191001
